FAERS Safety Report 9181027 (Version 2)
Quarter: 2013Q3

REPORT INFORMATION
  Report Type: Report from Study
  Country: US (occurrence: US)
  Receive Date: 20130322
  Receipt Date: 20130705
  Transmission Date: 20140515
  Serious: Yes (Other)
  Sender: FDA-Public Use
  Company Number: PHEH2013US006616

PATIENT
  Sex: Female

DRUGS (3)
  1. AFINITOR [Suspect]
     Dosage: 2 DF, QD
     Route: 048
  2. AFINITOR [Suspect]
     Dosage: UNK UKN, UNK
     Route: 048
  3. AFINITOR [Suspect]
     Dosage: 2 DF, QD
     Route: 048

REACTIONS (7)
  - Pneumonitis [Unknown]
  - Cough [Unknown]
  - Bronchitis [Unknown]
  - Sinusitis [Unknown]
  - Upper-airway cough syndrome [Unknown]
  - Drug intolerance [Unknown]
  - Malignant neoplasm progression [Unknown]
